FAERS Safety Report 5163083-X (Version None)
Quarter: 2006Q4

REPORT INFORMATION
  Report Type: 
  Country: None (occurrence: None)
  Receive Date: 20061201
  Receipt Date: 20060918
  Transmission Date: 20070319
  Serious: Yes (Other)
  Sender: FDA-Public Use
  Company Number: FR-MERCK-0609FRA00044

PATIENT
  Age: 61 Year
  Sex: Female

DRUGS (4)
  1. VYTORIN [Suspect]
     Indication: HYPERCHOLESTEROLAEMIA
     Route: 048
     Dates: start: 20060322, end: 20060614
  2. TRAMADOL HCL [Concomitant]
     Indication: ANKYLOSING SPONDYLITIS
     Route: 048
     Dates: start: 20010905
  3. LEVOTHYROXINE SODIUM [Concomitant]
     Indication: HYPOTHYROIDISM
     Route: 048
     Dates: start: 20050323
  4. LANSOPRAZOLE [Concomitant]
     Route: 048
     Dates: start: 20060222

REACTIONS (1)
  - RENAL FAILURE [None]
